FAERS Safety Report 25399176 (Version 2)
Quarter: 2025Q3

REPORT INFORMATION
  Report Type: Report from Study
  Country: US (occurrence: US)
  Receive Date: 20250605
  Receipt Date: 20250803
  Transmission Date: 20251020
  Serious: Yes (Other)
  Sender: ALEXION PHARMACEUTICALS
  Company Number: 202504USA021235US

PATIENT
  Sex: Female

DRUGS (3)
  1. OLAPARIB [Suspect]
     Active Substance: OLAPARIB
     Indication: Ovarian cancer
     Dosage: 300 MILLIGRAM, BID
     Dates: start: 20250416
  2. OLAPARIB [Suspect]
     Active Substance: OLAPARIB
     Indication: Peritoneal neoplasm
  3. OLAPARIB [Suspect]
     Active Substance: OLAPARIB
     Indication: Lung neoplasm malignant

REACTIONS (2)
  - Nausea [Recovering/Resolving]
  - Neuropathy peripheral [Recovering/Resolving]
